FAERS Safety Report 5843156-6 (Version None)
Quarter: 2008Q3

REPORT INFORMATION
  Report Type: 
  Country: None (occurrence: None)
  Receive Date: 20080813
  Receipt Date: 20080730
  Transmission Date: 20090109
  Serious: Yes (Other)
  Sender: FDA-Public Use
  Company Number: PHEH2006US10885

PATIENT
  Sex: Female
  Weight: 51.247 kg

DRUGS (4)
  1. AREDIA [Suspect]
  2. ZOMETA [Suspect]
  3. CALCIUM [Concomitant]
  4. IRON [Concomitant]

REACTIONS (16)
  - ANXIETY [None]
  - BONE DEBRIDEMENT [None]
  - DECREASED INTEREST [None]
  - DENTAL IMPLANTATION [None]
  - FALL [None]
  - FEMUR FRACTURE [None]
  - GENERAL PHYSICAL HEALTH DETERIORATION [None]
  - IMPAIRED HEALING [None]
  - INTERNAL FIXATION OF FRACTURE [None]
  - LOOSE TOOTH [None]
  - MEDICAL DEVICE REMOVAL [None]
  - OSTEONECROSIS [None]
  - OSTEOPOROSIS [None]
  - PAIN [None]
  - TOOTH DISORDER [None]
  - TOOTH EXTRACTION [None]
